FAERS Safety Report 7978670-0 (Version None)
Quarter: 2011Q4

REPORT INFORMATION
  Report Type: 
  Country: None (occurrence: None)
  Receive Date: 20111214
  Receipt Date: 20111129
  Transmission Date: 20120403
  Serious: Yes (Hospitalization, Other)
  Sender: FDA-Public Use
  Company Number: MX-SANOFI-AVENTIS-2010SA073887

PATIENT
  Age: 49 Year
  Sex: Male
  Weight: 70 kg

DRUGS (2)
  1. LANTUS [Suspect]
     Indication: TYPE 2 DIABETES MELLITUS
     Dosage: 30 IU / DAY (20 IU IN THE MORNING AND 10 IU AT NIGHT)
     Route: 058
     Dates: start: 20050101
  2. GABAPENTIN [Concomitant]
     Indication: NEUROPATHY PERIPHERAL
     Route: 048
     Dates: start: 20030101

REACTIONS (9)
  - SKELETAL INJURY [None]
  - MUSCLE INJURY [None]
  - PHOTOPHOBIA [None]
  - HYPERGLYCAEMIA [None]
  - VISUAL IMPAIRMENT [None]
  - EXCORIATION [None]
  - ROAD TRAFFIC ACCIDENT [None]
  - SKIN MASS [None]
  - DRUG ADMINISTRATION ERROR [None]
